FAERS Safety Report 7134201-9 (Version None)
Quarter: 2010Q4

REPORT INFORMATION
  Report Type: 
  Country: None (occurrence: None)
  Receive Date: 20101203
  Receipt Date: 20101125
  Transmission Date: 20110411
  Serious: Yes (Death, Hospitalization)
  Sender: FDA-Public Use
  Company Number: BR-PFIZER INC-2010151722

PATIENT
  Sex: Female
  Weight: 43 kg

DRUGS (8)
  1. REVATIO [Suspect]
     Indication: LUNG DISORDER
     Dosage: UNK
     Route: 048
     Dates: start: 20100601, end: 20101001
  2. VIAGRA [Suspect]
     Indication: LUNG DISORDER
     Dosage: UNK
     Route: 048
     Dates: start: 20101001
  3. EUTHYROX [Concomitant]
     Indication: THYROID DISORDER
  4. LASIX [Concomitant]
     Indication: DIURETIC THERAPY
  5. AMARYL [Concomitant]
     Indication: DIABETES MELLITUS
  6. DIGOXIN [Concomitant]
     Indication: CARDIAC DISORDER
  7. ALDACTONE [Concomitant]
  8. MAREVAN ^NYCOMED^ [Concomitant]
     Indication: ANTICOAGULANT THERAPY

REACTIONS (4)
  - ASTHENIA [None]
  - CARDIAC ARREST [None]
  - CARDIAC VALVE DISEASE [None]
  - DIABETES MELLITUS [None]
